FAERS Safety Report 4697772-8 (Version None)
Quarter: 2005Q2

REPORT INFORMATION
  Report Type: 
  Country: None (occurrence: None)
  Receive Date: 20050621
  Receipt Date: 20050606
  Transmission Date: 20051028
  Serious: Yes (Life-Threatening, Hospitalization)
  Sender: FDA-Public Use
  Company Number: 200410376GDS

PATIENT
  Age: 42 Year
  Sex: Male

DRUGS (3)
  1. NIFEDIPINE [Suspect]
     Indication: SUPRAVENTRICULAR TACHYCARDIA
  2. DILTIAZEM HYDROCHLORIDE [Suspect]
     Indication: SUPRAVENTRICULAR TACHYCARDIA
  3. VERAPAMIL [Suspect]
     Indication: SUPRAVENTRICULAR TACHYCARDIA

REACTIONS (20)
  - ACUTE MYOCARDIAL INFARCTION [None]
  - ANION GAP INCREASED [None]
  - ASTHENIA [None]
  - BLOOD CREATININE INCREASED [None]
  - BLOOD LACTIC ACID INCREASED [None]
  - BRADYCARDIA [None]
  - BUNDLE BRANCH BLOCK LEFT [None]
  - CONFUSIONAL STATE [None]
  - CORONARY ARTERY DISEASE [None]
  - HYPERHIDROSIS [None]
  - HYPOPERFUSION [None]
  - HYPOTENSION [None]
  - INTENTIONAL MISUSE [None]
  - METABOLIC ACIDOSIS [None]
  - MUSCLE NECROSIS [None]
  - MYOCARDIAL INFARCTION [None]
  - MYOCARDIAL ISCHAEMIA [None]
  - OVERDOSE [None]
  - PULMONARY OEDEMA [None]
  - VENTRICULAR HYPERKINESIA [None]
